FAERS Safety Report 8470300-7 (Version None)
Quarter: 2012Q2

REPORT INFORMATION
  Report Type: 
  Country: None (occurrence: None)
  Receive Date: 20120627
  Receipt Date: 20120615
  Transmission Date: 20120825
  Serious: Yes (Hospitalization)
  Sender: FDA-Public Use
  Company Number: DE-ELI_LILLY_AND_COMPANY-DE201111004522

PATIENT
  Sex: Female
  Weight: 125 kg

DRUGS (4)
  1. DEXAMETHASONE [Concomitant]
     Indication: PROPHYLAXIS
     Dosage: 8 MG, UNKNOWN
     Route: 042
     Dates: start: 20110901, end: 20111110
  2. DOCETAXEL [Suspect]
     Indication: BREAST CANCER
     Dosage: 75 MG, UNKNOWN
     Route: 042
     Dates: start: 20111103
  3. GEMCITABINE HYDROCHLORIDE [Suspect]
     Indication: BREAST CANCER
     Dosage: 1000 MG, UNKNOWN
     Route: 042
     Dates: start: 20111110
  4. GRANISETRON HYDROCHLORIDE [Concomitant]
     Indication: PROPHYLAXIS
     Dosage: 200 MG, UNKNOWN
     Route: 042
     Dates: start: 20110901, end: 20111110

REACTIONS (1)
  - CANDIDIASIS [None]
